FAERS Safety Report 21167345 (Version 1)
Quarter: 2022Q3

REPORT INFORMATION
  Report Type: Report from Study
  Country: ZA (occurrence: ZA)
  Receive Date: 20220803
  Receipt Date: 20220803
  Transmission Date: 20221027
  Serious: Yes (Other)
  Sender: FDA-Public Use
  Company Number: ZA-AMGEN-ZAFSP2022041559

PATIENT

DRUGS (2)
  1. BLINATUMOMAB [Suspect]
     Active Substance: BLINATUMOMAB
     Indication: Acute lymphocytic leukaemia
     Dosage: ONLY ADMINISTERED 1 CYCLE
     Route: 065
     Dates: start: 202203, end: 202203
  2. BLINATUMOMAB [Suspect]
     Active Substance: BLINATUMOMAB
     Indication: Minimal residual disease

REACTIONS (3)
  - Acute lymphocytic leukaemia recurrent [Unknown]
  - Neurotoxicity [Unknown]
  - Cytokine release syndrome [Unknown]

NARRATIVE: CASE EVENT DATE: 20220301
